FAERS Safety Report 5008659-5 (Version None)
Quarter: 2006Q2

REPORT INFORMATION
  Report Type: 
  Country: None (occurrence: None)
  Receive Date: 20060523
  Receipt Date: 20060518
  Transmission Date: 20061013
  Serious: Yes (Congenital Anomaly, Other)
  Sender: FDA-Public Use
  Company Number: US-GLAXOSMITHKLINE-A0606550A

PATIENT
  Sex: Female
  Weight: 1.9 kg

DRUGS (2)
  1. LAMICTAL [Suspect]
     Indication: MATERNAL CONDITION AFFECTING FOETUS
     Dosage: 150MG UNKNOWN
  2. DEPAKOTE [Concomitant]
     Indication: MATERNAL CONDITION AFFECTING FOETUS
     Dosage: 2250MG UNKNOWN

REACTIONS (4)
  - BREECH PRESENTATION [None]
  - DRUG EXPOSURE DURING PREGNANCY [None]
  - GASTROOESOPHAGEAL REFLUX DISEASE [None]
  - PATENT DUCTUS ARTERIOSUS [None]
